FAERS Safety Report 11524954 (Version 1)
Quarter: 2015Q3

REPORT INFORMATION
  Report Type: Report from Study
  Country: GB (occurrence: GB)
  Receive Date: 20150918
  Receipt Date: 20150918
  Transmission Date: 20151125
  Serious: Yes (Other)
  Sender: FDA-Public Use
  Company Number: GB-BRISTOL-MYERS SQUIBB COMPANY-17458142

PATIENT
  Age: 31 Year
  Sex: Female
  Weight: 53.8 kg

DRUGS (5)
  1. TETRACYCLINE [Concomitant]
     Active Substance: TETRACYCLINE
     Indication: RASH MACULO-PAPULAR
     Dosage: 500 MG, BID
     Route: 048
     Dates: start: 20130225
  2. HYDROXYUREA. [Suspect]
     Active Substance: HYDROXYUREA
     Indication: CHRONIC MYELOID LEUKAEMIA
     Dosage: 1.5 G, BID
     Route: 048
     Dates: start: 20121220, end: 20121227
  3. HYDROXYUREA. [Suspect]
     Active Substance: HYDROXYUREA
     Dosage: 1.5 G, UNK
     Route: 048
     Dates: start: 20121227, end: 20130104
  4. HYDROXYUREA. [Suspect]
     Active Substance: HYDROXYUREA
     Dosage: 1 UNK, UNK
     Route: 048
     Dates: start: 20130104, end: 20130107
  5. DASATINIB [Suspect]
     Active Substance: DASATINIB
     Indication: CHRONIC MYELOID LEUKAEMIA
     Dosage: 8JAN13:4FEB13  18FEB13:7MAR13
     Route: 048
     Dates: start: 20130108, end: 20130307

REACTIONS (2)
  - Maternal exposure during pregnancy [Recovered/Resolved]
  - Abortion induced [Unknown]

NARRATIVE: CASE EVENT DATE: 20130316
